FAERS Safety Report 10054981 (Version 2)
Quarter: 2014Q2

REPORT INFORMATION
  Report Type: Report from Study
  Country: CA (occurrence: CA)
  Receive Date: 20140402
  Receipt Date: 20140408
  Transmission Date: 20141212
  Serious: Yes (Other)
  Sender: FDA-Public Use
  Company Number: PHHY2014CA039012

PATIENT
  Age: 31 Year
  Sex: Male

DRUGS (3)
  1. GILENYA [Suspect]
     Indication: RELAPSING-REMITTING MULTIPLE SCLEROSIS
     Dosage: 0.5 MG, QD
     Dates: start: 20120830, end: 20131007
  2. GILENYA [Suspect]
     Dosage: 0.5 MG, QD
     Route: 048
     Dates: start: 20140326
  3. VITAMIN D [Concomitant]
     Dosage: 2000 IU, UNK

REACTIONS (3)
  - Defect conduction intraventricular [Recovering/Resolving]
  - Sinus arrhythmia [Recovering/Resolving]
  - Bradycardia [Recovered/Resolved]
